FAERS Safety Report 24333633 (Version 13)
Quarter: 2025Q2

REPORT INFORMATION
  Report Type: Spontaneous
  Country: GB (occurrence: GB)
  Receive Date: 20240918
  Receipt Date: 20250620
  Transmission Date: 20250717
  Serious: Yes (Hospitalization, Other)
  Sender: MYLAN
  Company Number: GB-MYLANLABS-2024M1084615

PATIENT
  Sex: Male

DRUGS (16)
  1. CLOZARIL [Suspect]
     Active Substance: CLOZAPINE
     Indication: Schizophrenia
     Route: 048
  2. CLOZARIL [Suspect]
     Active Substance: CLOZAPINE
     Route: 048
  3. CLOZARIL [Suspect]
     Active Substance: CLOZAPINE
  4. CLOZARIL [Suspect]
     Active Substance: CLOZAPINE
  5. CLOZARIL [Suspect]
     Active Substance: CLOZAPINE
     Route: 048
     Dates: start: 20250221, end: 20250523
  6. CLOZARIL [Suspect]
     Active Substance: CLOZAPINE
     Dates: start: 20250221, end: 20250523
  7. CLOZARIL [Suspect]
     Active Substance: CLOZAPINE
     Dates: start: 20250221, end: 20250523
  8. CLOZARIL [Suspect]
     Active Substance: CLOZAPINE
     Route: 048
     Dates: start: 20250221, end: 20250523
  9. CLOZARIL [Suspect]
     Active Substance: CLOZAPINE
     Route: 048
  10. CLOZARIL [Suspect]
     Active Substance: CLOZAPINE
     Route: 048
  11. CLOZARIL [Suspect]
     Active Substance: CLOZAPINE
  12. CLOZARIL [Suspect]
     Active Substance: CLOZAPINE
  13. CLOZARIL [Suspect]
     Active Substance: CLOZAPINE
     Route: 048
     Dates: start: 20250605, end: 20250611
  14. CLOZARIL [Suspect]
     Active Substance: CLOZAPINE
     Dates: start: 20250605, end: 20250611
  15. CLOZARIL [Suspect]
     Active Substance: CLOZAPINE
     Dates: start: 20250605, end: 20250611
  16. CLOZARIL [Suspect]
     Active Substance: CLOZAPINE
     Route: 048
     Dates: start: 20250605, end: 20250611

REACTIONS (15)
  - Malaise [Unknown]
  - Neoplasm malignant [Unknown]
  - Lymphoma [Unknown]
  - Schizophrenia [Unknown]
  - Leukopenia [Recovered/Resolved]
  - Neutrophil count decreased [Recovered/Resolved]
  - Thrombocytopenia [Recovered/Resolved]
  - Poor venous access [Unknown]
  - Lymphoedema [Unknown]
  - Eosinophil count decreased [Recovered/Resolved]
  - Full blood count abnormal [Unknown]
  - Pain in extremity [Unknown]
  - Off label use [Unknown]
  - Aggression [Unknown]
  - Treatment noncompliance [Unknown]

NARRATIVE: CASE EVENT DATE: 20240101
